FAERS Safety Report 14552772 (Version 2)
Quarter: 2018Q1

REPORT INFORMATION
  Report Type: Spontaneous
  Country: BA (occurrence: BA)
  Receive Date: 20180220
  Receipt Date: 20180316
  Transmission Date: 20180509
  Serious: Yes (Hospitalization, Other)
  Sender: FDA-Public Use
  Company Number: BA-JNJFOC-20180222282

PATIENT
  Age: 43 Year
  Sex: Male

DRUGS (20)
  1. HALOPERIDOL. [Suspect]
     Active Substance: HALOPERIDOL
     Indication: PSYCHOTIC DISORDER
     Dosage: 1, 1, 2 DOSE (S)
     Route: 065
  2. ISONIAZID. [Concomitant]
     Active Substance: ISONIAZID
     Indication: TUBERCULOSIS
     Dosage: FOR FIRST THREE MONTHS
     Route: 065
  3. SODIUM VALPROATE [Suspect]
     Active Substance: VALPROATE SODIUM
     Indication: EPILEPSY
     Route: 065
  4. PYRAZINAMIDE. [Concomitant]
     Active Substance: PYRAZINAMIDE
     Indication: TUBERCULOSIS
     Dosage: FOR FIRST THREE MONTHS
     Route: 065
  5. HALOPERIDOL. [Suspect]
     Active Substance: HALOPERIDOL
     Indication: PSYCHOTIC DISORDER
     Route: 065
  6. PROMAZINE [Suspect]
     Active Substance: PROMAZINE
     Indication: PSYCHOTIC DISORDER
     Dosage: 1, 1, 1.5 DOSE (S); STRENGTH 100 MG
     Route: 065
  7. LISINOPRIL. [Suspect]
     Active Substance: LISINOPRIL
     Indication: HYPERTENSION
     Route: 065
  8. DIAZEPAM. [Concomitant]
     Active Substance: DIAZEPAM
     Route: 065
  9. ETHAMBUTOL [Concomitant]
     Active Substance: ETHAMBUTOL HYDROCHLORIDE
     Indication: TUBERCULOSIS
     Dosage: FOR NEXT FIVE MONTHS
     Route: 065
  10. CARBAMAZEPINE. [Suspect]
     Active Substance: CARBAMAZEPINE
     Indication: EPILEPSY
     Route: 065
  11. AMOXICILLIN. [Concomitant]
     Active Substance: AMOXICILLIN
     Route: 065
  12. STREPTOMYCIN [Concomitant]
     Active Substance: STREPTOMYCIN\STREPTOMYCIN SULFATE
     Indication: TUBERCULOSIS
     Route: 030
  13. ISONIAZID. [Concomitant]
     Active Substance: ISONIAZID
     Indication: TUBERCULOSIS
     Dosage: FOR THE NEXT FIVE MONTHS
     Route: 065
  14. BIPERIDEN HYDROCHLORIDE [Concomitant]
     Active Substance: BIPERIDEN HYDROCHLORIDE
     Route: 048
  15. ETHAMBUTOL [Concomitant]
     Active Substance: ETHAMBUTOL HYDROCHLORIDE
     Indication: TUBERCULOSIS
     Dosage: FOR FIRST THREE MONTHS
     Route: 065
  16. SODIUM VALPROATE [Suspect]
     Active Substance: VALPROATE SODIUM
     Indication: EPILEPSY
     Route: 065
  17. PROMAZINE [Suspect]
     Active Substance: PROMAZINE
     Indication: PSYCHOTIC DISORDER
     Dosage: 1,1,2 DOSE(S); STRENGTH 25 MG
     Route: 065
  18. VITAMIN B COMPLEX [Suspect]
     Active Substance: CYANOCOBALAMIN\DEXPANTHENOL\NIACINAMIDE\PYRIDOXINE HYDROCHLORIDE\RIBOFLAVIN 5^-PHOSPHATE SODIUM\THIAMINE HYDROCHLORIDE\VITAMIN B COMPLEX
     Indication: PRODUCT USED FOR UNKNOWN INDICATION
     Dosage: FOR NEXT FIVE MONTHS
     Route: 065
  19. RIFAMPICIN [Concomitant]
     Active Substance: RIFAMPIN
     Indication: TUBERCULOSIS
     Dosage: FOR FIRST THREE MONTHS
     Route: 065
  20. RIFAMPICIN [Concomitant]
     Active Substance: RIFAMPIN
     Indication: TUBERCULOSIS
     Dosage: FOR NEXT FIVE MONTHS
     Route: 065

REACTIONS (2)
  - Hyponatraemia [Recovered/Resolved]
  - Water intoxication [Recovered/Resolved]
